FAERS Safety Report 7180322-4 (Version None)
Quarter: 2010Q4

REPORT INFORMATION
  Report Type: 
  Country: None (occurrence: None)
  Receive Date: 20101221
  Receipt Date: 20101210
  Transmission Date: 20110411
  Serious: Yes (Hospitalization)
  Sender: FDA-Public Use
  Company Number: A0805560A

PATIENT
  Age: 51 Year
  Sex: Male

DRUGS (1)
  1. AVANDIA [Suspect]
     Dosage: 8MG PER DAY
     Route: 048
     Dates: start: 20050101, end: 20070101

REACTIONS (4)
  - AORTIC VALVE STENOSIS [None]
  - ATRIAL FIBRILLATION [None]
  - MYOCARDIAL INFARCTION [None]
  - PANCREATITIS [None]
